FAERS Safety Report 25718535 (Version 1)
Quarter: 2025Q3

REPORT INFORMATION
  Report Type: Spontaneous
  Country: IQ (occurrence: IQ)
  Receive Date: 20250823
  Receipt Date: 20250823
  Transmission Date: 20251021
  Serious: Yes (Hospitalization, Other)
  Sender: MACLEODS
  Company Number: IQ-MACLEODS PHARMA-MAC2019023835

PATIENT

DRUGS (2)
  1. LEVOTHYROXINE [Suspect]
     Active Substance: LEVOTHYROXINE
     Indication: Hypothyroidism
     Route: 065
     Dates: start: 2018, end: 20180312
  2. LEVOTHYROXINE [Suspect]
     Active Substance: LEVOTHYROXINE
     Route: 065

REACTIONS (2)
  - Drug-induced liver injury [Recovered/Resolved]
  - Drug-induced liver injury [Recovered/Resolved]

NARRATIVE: CASE EVENT DATE: 20180101
